FAERS Safety Report 8134412-X (Version None)
Quarter: 2012Q1

REPORT INFORMATION
  Report Type: 
  Country: None (occurrence: None)
  Receive Date: 20120209
  Receipt Date: 20120125
  Transmission Date: 20120608
  Serious: Yes (Other)
  Sender: FDA-Public Use
  Company Number: 011639

PATIENT
  Age: 5 Year
  Sex: Male

DRUGS (3)
  1. MELPHALAN HYDROCHLORIDE [Concomitant]
  2. CYCLOPHOSPHAMIDE [Concomitant]
  3. BUSULFAN [Suspect]

REACTIONS (5)
  - TREMOR [None]
  - POST TRANSPLANT LYMPHOPROLIFERATIVE DISORDER [None]
  - HYDROCEPHALUS [None]
  - ATAXIA [None]
  - BRAIN OEDEMA [None]
